FAERS Safety Report 6918512-5 (Version None)
Quarter: 2010Q3

REPORT INFORMATION
  Report Type: 
  Country: None (occurrence: None)
  Receive Date: 20100722
  Receipt Date: 20100405
  Transmission Date: 20110219
  Serious: Yes (Other)
  Sender: FDA-Public Use
  Company Number: DSU-2010-01430

PATIENT
  Sex: Female

DRUGS (1)
  1. WELCHOL [Suspect]
     Indication: PRODUCT USED FOR UNKNOWN INDICATION
     Dosage: 3750 MG (1875 MG, BID) PER ORAL
     Route: 048

REACTIONS (1)
  - PANCREATITIS [None]
